FAERS Safety Report 19215421 (Version 2)
Quarter: 2021Q4

REPORT INFORMATION
  Report Type: Spontaneous
  Country: US (occurrence: US)
  Receive Date: 20210504
  Receipt Date: 20211025
  Transmission Date: 20220303
  Serious: Yes (Other)
  Sender: FDA-Public Use
  Company Number: US-GILEAD-2021-0527871

PATIENT
  Age: 69 Year
  Sex: Female
  Weight: 86.18 kg

DRUGS (42)
  1. TRUVADA [Suspect]
     Active Substance: EMTRICITABINE\TENOFOVIR DISOPROXIL FUMARATE
     Indication: HIV infection
     Dosage: UNK
     Route: 048
     Dates: start: 2008
  2. TRUVADA [Suspect]
     Active Substance: EMTRICITABINE\TENOFOVIR DISOPROXIL FUMARATE
     Dosage: UNK
     Route: 048
     Dates: start: 200807, end: 201802
  3. VIREAD [Suspect]
     Active Substance: TENOFOVIR DISOPROXIL FUMARATE
     Indication: HIV infection
     Dosage: UNK
     Route: 065
     Dates: start: 20021014, end: 2008
  4. DESCOVY [Concomitant]
     Active Substance: EMTRICITABINE\TENOFOVIR ALAFENAMIDE FUMARATE
  5. AZTREONAM LYSINE [Concomitant]
     Active Substance: AZTREONAM LYSINE
  6. CRIXIVAN [Concomitant]
     Active Substance: INDINAVIR SULFATE
  7. EPIVIR [Concomitant]
     Active Substance: LAMIVUDINE
  8. INVIRASE [Concomitant]
     Active Substance: SAQUINAVIR MESYLATE
  9. ISENTRESS [Concomitant]
     Active Substance: RALTEGRAVIR POTASSIUM
  10. KALETRA [Concomitant]
     Active Substance: LOPINAVIR\RITONAVIR
  11. NORVIR [Concomitant]
     Active Substance: RITONAVIR
  12. SUSTIVA [Concomitant]
     Active Substance: EFAVIRENZ
  13. TIVICAY [Concomitant]
     Active Substance: DOLUTEGRAVIR SODIUM
  14. VIDEX [Concomitant]
     Active Substance: DIDANOSINE
  15. VIRACEPT [Concomitant]
     Active Substance: NELFINAVIR MESYLATE
  16. ZIAGEN [Concomitant]
     Active Substance: ABACAVIR SULFATE
  17. ZERIT [Concomitant]
     Active Substance: STAVUDINE
  18. ASPIRIN [Concomitant]
     Active Substance: ASPIRIN
  19. IRBESARTAN AND HYDROCHLOROTHIAZIDE [Concomitant]
     Active Substance: HYDROCHLOROTHIAZIDE\IRBESARTAN
  20. LIPITOR [Concomitant]
     Active Substance: ATORVASTATIN CALCIUM
  21. MAGNESIUM OXIDE [Concomitant]
     Active Substance: MAGNESIUM OXIDE
  22. POTASSIUM [Concomitant]
     Active Substance: POTASSIUM
  23. PROCARDIA [Concomitant]
     Active Substance: NIFEDIPINE
  24. AVALIDE [Concomitant]
     Active Substance: HYDROCHLOROTHIAZIDE\IRBESARTAN
  25. NIFEDIPINE [Concomitant]
     Active Substance: NIFEDIPINE
  26. CARDIZEM [Concomitant]
     Active Substance: DILTIAZEM HYDROCHLORIDE
  27. PRILOSEC [Concomitant]
     Active Substance: OMEPRAZOLE MAGNESIUM
  28. MEVACOR [Concomitant]
     Active Substance: LOVASTATIN
  29. MEDROXYPROGESTERONE ACETATE [Concomitant]
     Active Substance: MEDROXYPROGESTERONE ACETATE
  30. PREMARIN [Concomitant]
     Active Substance: ESTROGENS, CONJUGATED
  31. DAPSONE [Concomitant]
     Active Substance: DAPSONE
  32. BACTRIM [Concomitant]
     Active Substance: SULFAMETHOXAZOLE\TRIMETHOPRIM
  33. ZIDOVUDINE [Concomitant]
     Active Substance: ZIDOVUDINE
  34. INDINAVIR [Concomitant]
     Active Substance: INDINAVIR
  35. ABACAVIR [Concomitant]
     Active Substance: ABACAVIR
  36. EFAVIRENZ [Concomitant]
     Active Substance: EFAVIRENZ
  37. ADEFOVIR [Concomitant]
     Active Substance: ADEFOVIR
  38. DIDANOSINE [Concomitant]
     Active Substance: DIDANOSINE
  39. HYDROXYUREA [Concomitant]
     Active Substance: HYDROXYUREA
  40. NELFINAVIR [Concomitant]
     Active Substance: NELFINAVIR
  41. LAMIVUDINE [Concomitant]
     Active Substance: LAMIVUDINE
  42. ABT [Concomitant]

REACTIONS (5)
  - Chronic kidney disease [Not Recovered/Not Resolved]
  - Emotional distress [Not Recovered/Not Resolved]
  - Anhedonia [Not Recovered/Not Resolved]
  - Anxiety [Not Recovered/Not Resolved]
  - Pain [Not Recovered/Not Resolved]

NARRATIVE: CASE EVENT DATE: 20180114
